FAERS Safety Report 25828528 (Version 1)
Quarter: 2025Q3

REPORT INFORMATION
  Report Type: Spontaneous
  Country: EU (occurrence: EU)
  Receive Date: 20250922
  Receipt Date: 20250922
  Transmission Date: 20251021
  Serious: Yes (Hospitalization, Other)
  Sender: BRISTOL-MYERS SQUIBB COMPANY
  Company Number: EU-BRISTOL-MYERS SQUIBB COMPANY-2025-129225

PATIENT
  Age: 77 Year
  Sex: Male

DRUGS (7)
  1. REPOTRECTINIB [Suspect]
     Active Substance: REPOTRECTINIB
     Indication: Adenosquamous cell lung cancer
  2. REPOTRECTINIB [Suspect]
     Active Substance: REPOTRECTINIB
  3. REPOTRECTINIB [Suspect]
     Active Substance: REPOTRECTINIB
  4. REPOTRECTINIB [Suspect]
     Active Substance: REPOTRECTINIB
  5. REPOTRECTINIB [Suspect]
     Active Substance: REPOTRECTINIB
  6. REPOTRECTINIB [Suspect]
     Active Substance: REPOTRECTINIB
  7. REPOTRECTINIB [Suspect]
     Active Substance: REPOTRECTINIB

REACTIONS (7)
  - General physical health deterioration [Unknown]
  - Arthralgia [Unknown]
  - Bradycardia [Unknown]
  - Dizziness [Not Recovered/Not Resolved]
  - Tinnitus [Not Recovered/Not Resolved]
  - Sinus node dysfunction [Unknown]
  - Non-small cell lung cancer metastatic [Unknown]

NARRATIVE: CASE EVENT DATE: 20240401
